FAERS Safety Report 19615384 (Version 2)
Quarter: 2022Q1

REPORT INFORMATION
  Report Type: Spontaneous
  Country: US (occurrence: None)
  Receive Date: 20210727
  Receipt Date: 20220202
  Transmission Date: 20220424
  Serious: Yes (Other)
  Sender: FDA-Public Use
  Company Number: 2021A631820

PATIENT
  Age: 68 Year
  Sex: Female
  Weight: 61.7 kg

DRUGS (17)
  1. NEXIUM [Suspect]
     Active Substance: ESOMEPRAZOLE MAGNESIUM
     Indication: Gastrooesophageal reflux disease
     Dosage: FOR VARIOUS DATES AND YEARS
     Route: 048
  2. NEXIUM [Suspect]
     Active Substance: ESOMEPRAZOLE MAGNESIUM
     Indication: Gastrooesophageal reflux disease
     Dosage: FOR VARIOUS DATES AND YEARS
     Route: 048
  3. NEXIUM [Suspect]
     Active Substance: ESOMEPRAZOLE MAGNESIUM
     Indication: Gastrooesophageal reflux disease
     Dosage: FOR VARIOUS DATES AND YEARS
     Route: 048
  4. NEXIUM [Suspect]
     Active Substance: ESOMEPRAZOLE MAGNESIUM
     Indication: Gastrooesophageal reflux disease
     Dosage: FOR VARIOUS DATES AND YEARS
     Route: 048
  5. ATORVASTATIN [Concomitant]
     Active Substance: ATORVASTATIN
     Indication: Blood cholesterol increased
     Route: 065
     Dates: start: 202002
  6. FENOFIBRIDE [Concomitant]
     Indication: Blood cholesterol
     Route: 065
     Dates: start: 202002
  7. CARBIDOPA [Concomitant]
     Active Substance: CARBIDOPA
     Indication: Parkinson^s disease
     Route: 065
     Dates: start: 202002
  8. LISINOPRIL [Concomitant]
     Active Substance: LISINOPRIL
     Indication: Hypertension
     Route: 065
     Dates: start: 2018
  9. TRAMADOL [Concomitant]
     Active Substance: TRAMADOL
     Indication: Pain
     Route: 065
     Dates: start: 201902
  10. DOCUSATE [Concomitant]
     Active Substance: DOCUSATE
     Indication: Pain
     Route: 065
     Dates: start: 201902
  11. ADENOSINE/HYPROMELLOSE [Concomitant]
     Indication: Pain
     Route: 065
     Dates: start: 201902
  12. CHOLECALCIFEROL [Concomitant]
     Active Substance: CHOLECALCIFEROL
     Indication: Pain
     Route: 065
     Dates: start: 201902
  13. HEPARIN [Concomitant]
     Active Substance: HEPARIN SODIUM
     Indication: Pain
     Route: 065
     Dates: start: 201902
  14. FAMOTIDINE [Concomitant]
     Active Substance: FAMOTIDINE
     Indication: Pain
     Route: 065
     Dates: start: 201902
  15. FENOFIBRATE [Concomitant]
     Active Substance: FENOFIBRATE
     Indication: Pain
     Route: 065
     Dates: start: 201902
  16. ACETAMINOPHEN [Concomitant]
     Active Substance: ACETAMINOPHEN
     Indication: Pain
     Route: 065
     Dates: start: 201902
  17. SIMVASTATIN [Concomitant]
     Active Substance: SIMVASTATIN
     Indication: Pain
     Route: 065
     Dates: start: 201902

REACTIONS (3)
  - Chronic kidney disease [Not Recovered/Not Resolved]
  - Renal failure [Unknown]
  - Rebound acid hypersecretion [Unknown]

NARRATIVE: CASE EVENT DATE: 20150101
